FAERS Safety Report 9778503 (Version 2)
Quarter: 2013Q4

REPORT INFORMATION
  Report Type: Report from Study
  Country: US (occurrence: US)
  Receive Date: 20131223
  Receipt Date: 20131223
  Transmission Date: 20140711
  Serious: Yes (Hospitalization)
  Sender: FDA-Public Use
  Company Number: US-BAYER-2013-150395

PATIENT
  Age: 56 Year
  Sex: Female

DRUGS (1)
  1. STIVARGA [Suspect]
     Indication: PRODUCT USED FOR UNKNOWN INDICATION
     Dosage: 160 MG, (21 DAYS ON AND 7 DAYS OFF)
     Route: 048
     Dates: start: 20131107, end: 20131118

REACTIONS (8)
  - Rash generalised [None]
  - Pyrexia [None]
  - Rash maculo-papular [Recovered/Resolved]
  - Pyrexia [None]
  - Hyponatraemia [None]
  - Hypotension [None]
  - Malaise [None]
  - Nausea [None]
